FAERS Safety Report 7450159-7 (Version None)
Quarter: 2011Q2

REPORT INFORMATION
  Report Type: 
  Country: None (occurrence: None)
  Receive Date: 20110502
  Receipt Date: 20110418
  Transmission Date: 20111010
  Serious: Yes (Hospitalization, Other)
  Sender: FDA-Public Use
  Company Number: US-CELGENEUS-163-21880-10080041

PATIENT
  Age: 67 Year
  Sex: Female
  Weight: 52.664 kg

DRUGS (8)
  1. PHENERGAN HCL [Concomitant]
     Route: 065
  2. ZOCOR [Concomitant]
     Route: 065
  3. DEXAMETHASONE [Concomitant]
     Route: 065
  4. FENTANYL [Concomitant]
     Route: 065
  5. REVLIMID [Suspect]
     Indication: MULTIPLE MYELOMA
     Dosage: 25 MILLIGRAM
     Route: 048
     Dates: start: 20100630, end: 20100720
  6. ATENOLOL [Concomitant]
     Route: 065
  7. ZOMETA [Concomitant]
     Route: 065
  8. OXYCODONE [Concomitant]
     Route: 065

REACTIONS (2)
  - HYPONATRAEMIA [None]
  - CHEST PAIN [None]
